FAERS Safety Report 10207703 (Version 2)
Quarter: 2014Q2

REPORT INFORMATION
  Report Type: Spontaneous
  Country: AT (occurrence: AT)
  Receive Date: 20140530
  Receipt Date: 20140530
  Transmission Date: 20141212
  Serious: Yes (Death)
  Sender: FDA-Public Use
  Company Number: AT-B.I. PHARMACEUTICALS,INC./RIDGEFIELD-2014-BI-23572BE

PATIENT
  Age: 82 Year
  Sex: Male
  Weight: 70 kg

DRUGS (12)
  1. PRADAXA [Suspect]
     Indication: ATRIAL FIBRILLATION
     Dosage: 220 MG
     Route: 065
     Dates: start: 20140424, end: 20140514
  2. ASS [Concomitant]
     Route: 065
  3. CLOPIDOGREL [Concomitant]
     Route: 065
  4. PANTOPRAZOL [Concomitant]
     Route: 065
  5. LANITOP [Concomitant]
     Route: 065
  6. SELOKEN RETARD [Concomitant]
     Route: 065
  7. TRITAZIDE [Concomitant]
     Dosage: DOSE PER APPLICAITON: 5/25MG
     Route: 065
  8. MOVICOL [Concomitant]
     Route: 065
  9. LAEVOLAC [Concomitant]
     Route: 065
  10. DANCOR [Concomitant]
     Route: 065
  11. SPIRONO [Concomitant]
     Route: 065
  12. LASIX [Concomitant]
     Route: 065

REACTIONS (1)
  - Haemorrhage intracranial [Fatal]
